FAERS Safety Report 13038262 (Version 1)
Quarter: 2016Q4

REPORT INFORMATION
  Report Type: Spontaneous
  Country: US (occurrence: US)
  Receive Date: 20161219
  Receipt Date: 20161219
  Transmission Date: 20170207
  Serious: No
  Sender: FDA-Public Use
  Company Number: US-AMGEN-USASP2016172512

PATIENT
  Age: 44 Year
  Sex: Male

DRUGS (6)
  1. TRIAMCINOLONE [Concomitant]
     Active Substance: TRIAMCINOLONE
     Indication: DERMATITIS ATOPIC
     Dosage: 20 MG, BID
     Route: 030
  2. ENBREL [Suspect]
     Active Substance: ETANERCEPT
     Indication: DERMATITIS ATOPIC
     Dosage: 50 MG, 2 TIMES/WK
     Route: 065
  3. AZITHROMYCIN ANHYDROUS. [Concomitant]
     Active Substance: AZITHROMYCIN ANHYDROUS
     Indication: DERMATITIS ATOPIC
     Dosage: 500 MG, UNK (ON DAY 1)
  4. AZITHROMYCIN ANHYDROUS. [Concomitant]
     Active Substance: AZITHROMYCIN ANHYDROUS
     Dosage: 250 MG, QD
  5. CLOBETASOL PROPIONATE. [Concomitant]
     Active Substance: CLOBETASOL PROPIONATE
     Indication: DERMATITIS ATOPIC
     Dosage: UNK UNK, AS NECESSARY
     Route: 061
  6. HYDROXYZINE [Concomitant]
     Active Substance: HYDROXYZINE\HYDROXYZINE HYDROCHLORIDE
     Indication: DERMATITIS ATOPIC
     Dosage: 10 MG, UNK

REACTIONS (2)
  - Off label use [Unknown]
  - Dermatitis atopic [Recovering/Resolving]
